FAERS Safety Report 20195384 (Version 1)
Quarter: 2021Q4

REPORT INFORMATION
  Report Type: Spontaneous
  Country: US (occurrence: None)
  Receive Date: 20211215
  Receipt Date: 20211215
  Transmission Date: 20220303
  Serious: No
  Sender: FDA-Public Use
  Company Number: None

PATIENT
  Age: 41 Year
  Sex: Female
  Weight: 85.5 kg

DRUGS (2)
  1. SECRET COOL WATERLILY INVISIBLE [Suspect]
     Active Substance: ALUMINUM ZIRCONIUM TETRACHLOROHYDREX GLY
     Indication: Product used for unknown indication
     Dates: start: 20210701, end: 20210917
  2. STOMACH MEDICINE FOR ULCERATIVE COLITIS, DIVERTICULITIS [Concomitant]

REACTIONS (4)
  - Rash [None]
  - Urticaria [None]
  - Scar [None]
  - Therapy non-responder [None]

NARRATIVE: CASE EVENT DATE: 20210812
